FAERS Safety Report 6635560-3 (Version None)
Quarter: 2010Q1

REPORT INFORMATION
  Report Type: 
  Country: None (occurrence: None)
  Receive Date: 20100315
  Receipt Date: 20100127
  Transmission Date: 20100710
  Serious: No
  Sender: FDA-Public Use
  Company Number: US-ABBOTT-10P-163-0623102-00

PATIENT
  Sex: Male

DRUGS (3)
  1. DEPAKOTE [Suspect]
     Indication: CONVULSION
     Route: 048
     Dates: start: 20090601
  2. DEPAKOTE [Suspect]
     Route: 048
     Dates: start: 20060101, end: 20090301
  3. DEPAKOTE [Suspect]
     Indication: CONVULSION
     Dates: start: 20090301, end: 20090601

REACTIONS (2)
  - ABNORMAL BEHAVIOUR [None]
  - SOMNOLENCE [None]
